FAERS Safety Report 23857024 (Version 1)
Quarter: 2024Q2

REPORT INFORMATION
  Report Type: Spontaneous
  Country: US (occurrence: US)
  Receive Date: 20240515
  Receipt Date: 20240515
  Transmission Date: 20240716
  Serious: Yes (Death)
  Sender: FDA-Public Use
  Company Number: US-AMGEN-USASP2024092823

PATIENT
  Sex: Female

DRUGS (7)
  1. CINACALCET HYDROCHLORIDE [Suspect]
     Active Substance: CINACALCET HYDROCHLORIDE
     Indication: Calciphylaxis
     Dosage: UNK
     Route: 065
  2. VITAMIN D2 [Concomitant]
     Active Substance: ERGOCALCIFEROL
     Dosage: 125 MILLIGRAM, QWK
     Route: 065
  3. IRON [Concomitant]
     Active Substance: IRON
     Route: 042
  4. SEVELAMER [Concomitant]
     Active Substance: SEVELAMER
     Dosage: 1600 MILLIGRAM, TID
     Route: 065
  5. PARICALCITOL [Concomitant]
     Active Substance: PARICALCITOL
     Dosage: 4 MICROGRAM, QD
     Route: 065
  6. SODIUM THIOSULFATE [Concomitant]
     Active Substance: SODIUM THIOSULFATE
     Indication: Calciphylaxis
     Dosage: UNK
     Route: 042
  7. SODIUM THIOSULFATE [Concomitant]
     Active Substance: SODIUM THIOSULFATE
     Dosage: UNK
     Route: 026

REACTIONS (3)
  - Pulseless electrical activity [Fatal]
  - Blood alkaline phosphatase increased [Unknown]
  - Off label use [Unknown]
